FAERS Safety Report 8636781 (Version 2)
Quarter: 2013Q2

REPORT INFORMATION
  Report Type: Spontaneous
  Country: JP (occurrence: None)
  Receive Date: 20120612
  Receipt Date: 20130404
  Transmission Date: 20140414
  Serious: No
  Sender: FDA-Public Use
  Company Number: TPA2012A03402

PATIENT
  Age: 78 Year
  Sex: Male

DRUGS (11)
  1. FEBUXOSTAT [Suspect]
     Indication: HYPERURICAEMIA
     Dosage: 10 MG (10 MG, 1 IN 1 D)
     Route: 048
     Dates: start: 201109, end: 20120514
  2. MUCOSOLVAN TABLET (AMBROXOL) [Concomitant]
  3. THEO-DUR [Concomitant]
  4. ADALAT [Concomitant]
  5. ALTAT (ROXATIDINE ACETATE HYDROCHLORIDE) [Concomitant]
  6. DIGOSIN (DIGOSIN) [Concomitant]
  7. LASIX [Concomitant]
  8. WARFARIN SODIUM [Concomitant]
  9. ECARD (LISINOPRIL) [Concomitant]
  10. ISOSORBIDE DINITRATE [Concomitant]
  11. HOKUNALIN:TAPE (TULOBUTEROL HYDROCHLORIDE) [Concomitant]

REACTIONS (7)
  - PLEURISY [None]
  - PLEURAL EFFUSION [None]
  - Ejection fraction decreased [None]
  - Cardiac failure congestive [None]
  - Renal impairment [None]
  - Hypoxia [None]
  - Lymphocyte stimulation test positive [None]
